FAERS Safety Report 22609059 (Version 1)
Quarter: 2023Q2

REPORT INFORMATION
  Report Type: Spontaneous
  Country: US (occurrence: None)
  Receive Date: 20230615
  Receipt Date: 20230615
  Transmission Date: 20230722
  Serious: No
  Sender: FDA-Public Use
  Company Number: None

PATIENT
  Sex: Male

DRUGS (19)
  1. ABIRATERONE [Suspect]
     Active Substance: ABIRATERONE
     Indication: Prostate cancer
     Dosage: 4 TABS QD PO?
     Route: 048
  2. PREDNISONE [Suspect]
     Active Substance: PREDNISONE
     Dosage: 1T QD PO?
     Route: 048
  3. AMBIEN [Concomitant]
  4. ELIQUIS [Concomitant]
     Active Substance: APIXABAN
  5. GLIMEPIRIDE [Concomitant]
     Active Substance: GLIMEPIRIDE
  6. JANUVIA [Concomitant]
     Active Substance: SITAGLIPTIN PHOSPHATE
  7. LISINOPRIL [Concomitant]
  8. METFORMIN [Concomitant]
  9. NAPROXEN [Concomitant]
  10. NORCO [Concomitant]
  11. NOVOLOG [Concomitant]
     Active Substance: INSULIN ASPART
  12. OMEPRAZOLE [Concomitant]
  13. PREDNISONE [Concomitant]
     Active Substance: PREDNISONE
  14. QUETIAPINE [Concomitant]
  15. TIZANIDINE [Concomitant]
  16. TOUJEO [Concomitant]
     Active Substance: INSULIN GLARGINE
  17. TRAMADOL [Concomitant]
  18. VOLTAREM [Concomitant]
  19. ZYTIGA [Concomitant]
     Active Substance: ABIRATERONE ACETATE

REACTIONS (2)
  - Therapeutic response decreased [None]
  - Therapy cessation [None]
